FAERS Safety Report 7134879-X (Version None)
Quarter: 2010Q4

REPORT INFORMATION
  Report Type: 
  Country: None (occurrence: None)
  Receive Date: 20101130
  Receipt Date: 20101130
  Transmission Date: 20110411
  Serious: Yes (Other)
  Sender: FDA-Public Use
  Company Number: None

PATIENT
  Age: 8 Year
  Sex: Male
  Weight: 30.8446 kg

DRUGS (1)
  1. SINGULAIR [Suspect]
     Indication: ASTHMA
     Dosage: 5 MG ONCE DAILY PO
     Route: 048

REACTIONS (7)
  - AGGRESSION [None]
  - ANXIETY [None]
  - CRYING [None]
  - DRUG DOSE OMISSION [None]
  - MOOD ALTERED [None]
  - PERSONALITY CHANGE [None]
  - SCREAMING [None]
